FAERS Safety Report 10970719 (Version 1)
Quarter: 2015Q1

REPORT INFORMATION
  Report Type: Spontaneous
  Country: US (occurrence: None)
  Receive Date: 20150330
  Receipt Date: 20150330
  Transmission Date: 20150721
  Serious: No
  Sender: FDA-Public Use
  Company Number: None

PATIENT
  Age: 47 Year
  Sex: Female
  Weight: 64.41 kg

DRUGS (8)
  1. BELVIQ [Suspect]
     Active Substance: LORCASERIN HYDROCHLORIDE
     Indication: WEIGHT LOSS DIET
     Dosage: 1 PILL
  2. LEVOTHYROXINE [Concomitant]
     Active Substance: LEVOTHYROXINE
  3. POTASSIUM [Concomitant]
     Active Substance: POTASSIUM
  4. GARLIC CAPSULE [Concomitant]
  5. VITAMIN D [Concomitant]
     Active Substance: CHOLECALCIFEROL
  6. CALCIUM [Concomitant]
     Active Substance: CALCIUM
  7. MAGNESIUM [Concomitant]
     Active Substance: MAGNESIUM
  8. ZINC [Concomitant]
     Active Substance: ZINC\ZINC CHLORIDE

REACTIONS (10)
  - Paraesthesia [None]
  - Dysarthria [None]
  - Body temperature decreased [None]
  - Fatigue [None]
  - Feeling cold [None]
  - Nausea [None]
  - Disturbance in attention [None]
  - Headache [None]
  - Musculoskeletal stiffness [None]
  - Lip discolouration [None]

NARRATIVE: CASE EVENT DATE: 20150328
